FAERS Safety Report 8772838 (Version 1)
Quarter: 2012Q4

REPORT INFORMATION
  Report Type: Report from Study
  Country: GB (occurrence: GB)
  Receive Date: 20120907
  Receipt Date: 20120907
  Transmission Date: 20130627
  Serious: Yes (Other)
  Sender: FDA-Public Use
  Company Number: GB-GENZYME-CLOF-1002285

PATIENT
  Age: 65 None
  Sex: Female

DRUGS (3)
  1. EVOLTRA [Suspect]
     Indication: PRODUCT USED FOR UNKNOWN INDICATION
     Dosage: UNK
     Route: 065
     Dates: start: 20120531, end: 20120704
  2. MOZOBIL [Suspect]
     Indication: PRODUCT USED FOR UNKNOWN INDICATION
     Dosage: UNK
     Route: 065
     Dates: start: 20120531, end: 20120704
  3. DAUNORUBICIN [Suspect]
     Indication: PRODUCT USED FOR UNKNOWN INDICATION
     Dosage: UNK
     Route: 065
     Dates: start: 20120531, end: 20120704

REACTIONS (2)
  - Aspiration bone marrow abnormal [Unknown]
  - Neutropenia [Not Recovered/Not Resolved]
